FAERS Safety Report 11940129 (Version 1)
Quarter: 2016Q1

REPORT INFORMATION
  Report Type: Other
  Country: US (occurrence: US)
  Receive Date: 20160122
  Receipt Date: 20160122
  Transmission Date: 20160526
  Serious: No
  Sender: FDA-Public Use
  Company Number: US-BRECKENRIDGE PHARMACEUTICAL, INC.-1046785

PATIENT
  Age: 52 Year
  Sex: Male
  Weight: 81.82 kg

DRUGS (2)
  1. NASONEX (MOMETASONE FUROATE MONOHYDRATE) [Concomitant]
     Active Substance: MOMETASONE FUROATE MONOHYDRATE
  2. AZELASTINE HYDROCHLORIDE. [Suspect]
     Active Substance: AZELASTINE HYDROCHLORIDE
     Indication: CHRONIC SINUSITIS
     Route: 045
     Dates: start: 20151222, end: 20151222

REACTIONS (4)
  - Drug ineffective [Recovered/Resolved]
  - Sinus congestion [None]
  - Headache [None]
  - Product substitution issue [None]

NARRATIVE: CASE EVENT DATE: 20151222
